FAERS Safety Report 5524122-7 (Version None)
Quarter: 2007Q4

REPORT INFORMATION
  Report Type: 
  Country: None (occurrence: None)
  Receive Date: 20071121
  Receipt Date: 20071114
  Transmission Date: 20080405
  Serious: Yes (Death)
  Sender: FDA-Public Use
  Company Number: JP-MERCK-0701USA03858

PATIENT
  Age: 72 Year
  Sex: Male

DRUGS (7)
  1. PEPCID RPD [Suspect]
     Route: 048
     Dates: start: 20030101, end: 20070116
  2. URSO 250 [Concomitant]
     Route: 065
     Dates: start: 20030101, end: 20070116
  3. DIHYDROCODEINE PHOSPHATE [Suspect]
     Route: 065
     Dates: start: 20060101, end: 20070116
  4. STRONGER NEO-MINOPHAGEN C [Concomitant]
     Route: 065
  5. MICAFUNGIN SODIUM [Suspect]
     Route: 042
     Dates: start: 20070216, end: 20070216
  6. MARZULENE [Concomitant]
     Route: 065
     Dates: start: 20030101
  7. TOUGHMAC E [Concomitant]
     Route: 065
     Dates: start: 20030101

REACTIONS (1)
  - PLATELET COUNT DECREASED [None]
